FAERS Safety Report 5927802-4 (Version None)
Quarter: 2008Q4

REPORT INFORMATION
  Report Type: 
  Country: None (occurrence: None)
  Receive Date: 20081023
  Receipt Date: 20080922
  Transmission Date: 20090506
  Serious: No
  Sender: FDA-Public Use
  Company Number: US-BAYER-200834371NA

PATIENT
  Age: 44 Year
  Sex: Female

DRUGS (2)
  1. YAZ [Suspect]
     Indication: ACNE
     Route: 048
     Dates: start: 20080601
  2. ACCUTANE [Concomitant]
     Indication: ACNE
     Dates: start: 20080920

REACTIONS (3)
  - HYPOMENORRHOEA [None]
  - MENORRHAGIA [None]
  - MENSTRUATION IRREGULAR [None]
